FAERS Safety Report 9815003 (Version 1)
Quarter: 2014Q1

REPORT INFORMATION
  Report Type: Report from Study
  Country: FR (occurrence: FR)
  Receive Date: 20140114
  Receipt Date: 20140114
  Transmission Date: 20141002
  Serious: Yes (Hospitalization)
  Sender: FDA-Public Use
  Company Number: FR-ROCHE-1330808

PATIENT
  Age: 83 Year
  Sex: Female
  Weight: 80 kg

DRUGS (10)
  1. RITUXIMAB [Suspect]
     Indication: ANTI-NEUTROPHIL CYTOPLASMIC ANTIBODY POSITIVE VASCULITIS
     Route: 041
     Dates: start: 20121205
  2. CORTANCYL [Suspect]
     Indication: ANTI-NEUTROPHIL CYTOPLASMIC ANTIBODY POSITIVE VASCULITIS
     Route: 048
     Dates: start: 20121205
  3. CALCIDOSE VITAMINE D [Concomitant]
     Dosage: 1 SACHET IN THE MORNING
     Route: 065
  4. PRAVASTATINE [Concomitant]
     Dosage: IN EVENING
     Route: 065
  5. AMLODIPINE [Concomitant]
     Dosage: IN MORNING
     Route: 065
  6. ATACAND [Concomitant]
     Dosage: ONE IN MORNING
     Route: 065
  7. COUMADINE [Concomitant]
     Dosage: 0.5 TABLET IN MORNING
     Route: 065
  8. EUPRESSYL [Concomitant]
     Dosage: ONE IN MORNING
     Route: 065
  9. ALPRAZOLAM [Concomitant]
     Dosage: ONE IN EVENING
     Route: 065
  10. LASILIX [Concomitant]
     Dosage: DAILY
     Route: 065

REACTIONS (2)
  - Renal failure chronic [Recovered/Resolved]
  - Escherichia urinary tract infection [Recovered/Resolved]
